FAERS Safety Report 7337184-1 (Version None)
Quarter: 2011Q1

REPORT INFORMATION
  Report Type: 
  Country: None (occurrence: None)
  Receive Date: 20110308
  Receipt Date: 20110302
  Transmission Date: 20110831
  Serious: No
  Sender: FDA-Public Use
  Company Number: US-PFIZER INC-2011046836

PATIENT
  Age: 83 Year
  Sex: Female

DRUGS (9)
  1. CYMBALTA [Concomitant]
     Indication: DEPRESSION
  2. PLAVIX [Concomitant]
  3. GABAPENTIN [Suspect]
     Dosage: 600 MG, 3X/DAY
  4. COREG [Concomitant]
     Indication: CARDIAC DISORDER
  5. GLYBURIDE [Concomitant]
  6. LASIX [Concomitant]
     Indication: FLUID RETENTION
  7. NORVASC [Concomitant]
  8. ENALAPRIL [Concomitant]
  9. POTASSIUM [Concomitant]

REACTIONS (1)
  - DRUG INEFFECTIVE [None]
